FAERS Safety Report 5510013-4 (Version None)
Quarter: 2007Q4

REPORT INFORMATION
  Report Type: 
  Country: None (occurrence: None)
  Receive Date: 20071108
  Receipt Date: 20070620
  Transmission Date: 20080405
  Serious: No
  Sender: FDA-Public Use
  Company Number: US-ABBOTT-07P-163-0372497-00

PATIENT
  Sex: Female
  Weight: 72.186 kg

DRUGS (7)
  1. BIAXIN [Suspect]
     Indication: BRONCHITIS
     Route: 048
     Dates: start: 19920101, end: 19920101
  2. SEREVENT [Concomitant]
     Indication: ASTHMA
     Dosage: 1 PUFF
     Route: 055
  3. PULMACORT [Concomitant]
     Indication: ASTHMA
     Dosage: 1 PUFF
     Route: 055
  4. ALLEGRA D 24 HOUR [Concomitant]
     Indication: HYPERSENSITIVITY
     Dosage: 1 BID
     Route: 048
  5. MONTELUKAST SODIUM [Concomitant]
     Indication: ASTHMA
     Route: 048
     Dates: start: 20000101
  6. WARFARIN SODIUM [Concomitant]
     Indication: ANTICOAGULANT THERAPY
     Dosage: 2.0 MG FOR 5 DAYS, 1 MG 2 DAYS A WEEK
     Route: 048
  7. AMLODIPINE [Concomitant]
     Indication: BLOOD PRESSURE
     Route: 048

REACTIONS (1)
  - VISUAL DISTURBANCE [None]
